FAERS Safety Report 7558893-5 (Version None)
Quarter: 2011Q2

REPORT INFORMATION
  Report Type: 
  Country: None (occurrence: None)
  Receive Date: 20110613
  Receipt Date: 20110531
  Transmission Date: 20111010
  Serious: Yes (Hospitalization)
  Sender: FDA-Public Use
  Company Number: 1000021168

PATIENT
  Age: 62 Year
  Sex: Male

DRUGS (8)
  1. SYMBICORT (BUDESONIDE, FORMOTEROL FUMARATE) (BUDESONIDE, FORMOTEROL FU [Concomitant]
  2. ACC LONG (ACETYLCYSTEINE) (ACETYLICYSTEINE) [Concomitant]
  3. SPIRIVA (TIOTROPIUM BROMIDE) (TIOTROPIUM BROMIDE) [Concomitant]
  4. THEOPHYLLINE [Suspect]
     Indication: CHRONIC OBSTRUCTIVE PULMONARY DISEASE
     Dosage: 500 MG (250 MG, 2 IN 1 D),ORAL; 500 MCG (250 MCG, 2 IN 1 D), ORAL
     Route: 048
     Dates: start: 20110330
  5. THEOPHYLLINE [Suspect]
     Indication: CHRONIC OBSTRUCTIVE PULMONARY DISEASE
     Dosage: 500 MG (250 MG, 2 IN 1 D),ORAL; 500 MCG (250 MCG, 2 IN 1 D), ORAL
     Route: 048
     Dates: end: 20110313
  6. ROFLUMILAST (ROFLUMILAST) (500 MICROGRAM, TABLETS) [Suspect]
     Indication: CHRONIC OBSTRUCTIVE PULMONARY DISEASE
     Dosage: 500 MCG (500 MCG, 1 IN 1 D), ORAL
     Route: 048
     Dates: start: 20110313, end: 20110330
  7. DECORTIN (PREDNISONE) (PREDNISONE) [Concomitant]
  8. ARELIX (PIRETANIDE) (PIRETANIDE) [Concomitant]

REACTIONS (5)
  - VERTIGO [None]
  - HYPOTENSION [None]
  - DIZZINESS [None]
  - TACHYCARDIA [None]
  - PALPITATIONS [None]
